FAERS Safety Report 15333315 (Version 1)
Quarter: 2018Q3

REPORT INFORMATION
  Report Type: Spontaneous
  Country: US (occurrence: US)
  Receive Date: 20180824
  Receipt Date: 20180824
  Transmission Date: 20181010
  Serious: Yes (Other)
  Sender: FDA-Public Use
  Company Number: None

PATIENT
  Age: 70 Year
  Sex: Female
  Weight: 84.15 kg

DRUGS (3)
  1. TYLENOL [Concomitant]
     Active Substance: ACETAMINOPHEN
  2. XANAX [Concomitant]
     Active Substance: ALPRAZOLAM
  3. EYLEA [Suspect]
     Active Substance: AFLIBERCEPT
     Indication: MACULAR DEGENERATION
     Dates: start: 20170824, end: 20180824

REACTIONS (6)
  - Eye pain [None]
  - Visual impairment [None]
  - Vitreous floaters [None]
  - Photopsia [None]
  - Intraocular pressure increased [None]
  - Drug ineffective [None]

NARRATIVE: CASE EVENT DATE: 20180424
